FAERS Safety Report 5871489-6 (Version None)
Quarter: 2008Q3

REPORT INFORMATION
  Report Type: 
  Country: None (occurrence: None)
  Receive Date: 20080905
  Receipt Date: 20080226
  Transmission Date: 20090109
  Serious: No
  Sender: FDA-Public Use
  Company Number: A0711929A

PATIENT
  Age: 76 Year
  Sex: Female

DRUGS (11)
  1. REQUIP [Suspect]
     Indication: PARKINSON'S DISEASE
     Dosage: 2MG FOUR TIMES PER DAY
     Route: 048
     Dates: start: 20030101
  2. SINEMET [Concomitant]
  3. AZILECT [Concomitant]
  4. POTASSIUM CHLORIDE [Concomitant]
  5. CALCIUM [Concomitant]
  6. LASIX [Concomitant]
  7. CARDIZEM [Concomitant]
  8. SYNTHROID [Concomitant]
  9. BENAZEPRIL HYDROCHLORIDE [Concomitant]
  10. VITAMIN D [Concomitant]
  11. FISH OIL [Concomitant]

REACTIONS (4)
  - FALL [None]
  - FATIGUE [None]
  - SLEEP DISORDER [None]
  - SOMNOLENCE [None]
